FAERS Safety Report 22239526 (Version 3)
Quarter: 2023Q2

REPORT INFORMATION
  Report Type: Spontaneous
  Country: CZ (occurrence: CZ)
  Receive Date: 20230421
  Receipt Date: 20230501
  Transmission Date: 20230722
  Serious: Yes (Death, Hospitalization, Other)
  Sender: FDA-Public Use
  Company Number: CZ-SA-2023SA123878

PATIENT
  Age: 58 Year
  Sex: Female
  Weight: 105 kg

DRUGS (1)
  1. ENOXAPARIN SODIUM [Suspect]
     Active Substance: ENOXAPARIN SODIUM
     Indication: Deep vein thrombosis
     Dosage: 1 ML,SINGLE DOSE OF CLEXANE 10 000
     Route: 058
     Dates: start: 2022

REACTIONS (5)
  - Pulmonary embolism [Fatal]
  - Treatment noncompliance [Fatal]
  - Obstructive shock [Fatal]
  - Hypertension [Fatal]
  - Hypoxia [Fatal]

NARRATIVE: CASE EVENT DATE: 20220101
